FAERS Safety Report 12146049 (Version 6)
Quarter: 2019Q2

REPORT INFORMATION
  Report Type: Spontaneous
  Country: US (occurrence: US)
  Receive Date: 20160304
  Receipt Date: 20190402
  Transmission Date: 20190711
  Serious: No
  Sender: FDA-Public Use
  Company Number: US-ASTRAZENECA-2016SE19315

PATIENT
  Age: 738 Month
  Sex: Male

DRUGS (10)
  1. BRILINTA [Suspect]
     Active Substance: TICAGRELOR
     Indication: MYOCARDIAL INFARCTION
     Route: 048
     Dates: start: 201601
  2. METOPROLOL. [Suspect]
     Active Substance: METOPROLOL
     Route: 065
     Dates: start: 201601
  3. LIPITOR [Concomitant]
     Active Substance: ATORVASTATIN CALCIUM
     Dates: start: 201601
  4. BRILINTA [Suspect]
     Active Substance: TICAGRELOR
     Indication: ACUTE CORONARY SYNDROME
     Route: 048
     Dates: start: 201601
  5. BRILINTA [Suspect]
     Active Substance: TICAGRELOR
     Indication: ACUTE CORONARY SYNDROME
     Route: 048
  6. ASPIRIN. [Concomitant]
     Active Substance: ASPIRIN
     Dates: start: 201601
  7. BRILINTA [Suspect]
     Active Substance: TICAGRELOR
     Indication: STENT PLACEMENT
     Route: 048
     Dates: start: 201601
  8. BRILINTA [Suspect]
     Active Substance: TICAGRELOR
     Indication: MYOCARDIAL INFARCTION
     Route: 048
  9. BRILINTA [Suspect]
     Active Substance: TICAGRELOR
     Indication: STENT PLACEMENT
     Route: 048
  10. LISINOPRIL. [Suspect]
     Active Substance: LISINOPRIL
     Indication: HYPERTENSION
     Route: 048
     Dates: start: 201601, end: 2018

REACTIONS (15)
  - Chest discomfort [Unknown]
  - Contusion [Recovering/Resolving]
  - Intentional product misuse [Unknown]
  - Pain of skin [Unknown]
  - Dizziness [Unknown]
  - Product use issue [Unknown]
  - Nausea [Unknown]
  - Off label use [Unknown]
  - Somnolence [Unknown]
  - Headache [Recovered/Resolved]
  - Impaired healing [Unknown]
  - Product dose omission [Unknown]
  - Fatigue [Unknown]
  - Haemorrhagic diathesis [Recovered/Resolved]
  - Toothache [Unknown]

NARRATIVE: CASE EVENT DATE: 201601
